FAERS Safety Report 4445361-2 (Version None)
Quarter: 2004Q3

REPORT INFORMATION
  Report Type: 
  Country: None (occurrence: None)
  Receive Date: 20040907
  Receipt Date: 20040822
  Transmission Date: 20050211
  Serious: Yes (Life-Threatening, Hospitalization)
  Sender: FDA-Public Use
  Company Number: 700283

PATIENT
  Age: 55 Year
  Sex: Female
  Weight: 40.3 kg

DRUGS (10)
  1. EXTRANEAL [Suspect]
     Indication: PERITONEAL DIALYSIS
     Dosage: 1.5 L; QD; INTRAPERITONEAL
     Route: 033
     Dates: start: 20040224, end: 20040306
  2. EXTRANEAL [Suspect]
     Indication: PERITONEAL DIALYSIS
     Dosage: 1.5 L; QD; INTRAPERITONEAL
     Route: 033
     Dates: start: 20040319, end: 20040323
  3. DIANEAL [Concomitant]
  4. HEPARIN [Concomitant]
  5. CALCIUM CARBONATE [Concomitant]
  6. SENNOSIDE [Concomitant]
  7. SIMVISTATIN [Concomitant]
  8. POLARAMINE [Concomitant]
  9. HALCION [Concomitant]
  10. EPOETIN ALFA [Concomitant]

REACTIONS (5)
  - BLOOD OSMOLARITY INCREASED [None]
  - CHEYNE-STOKES RESPIRATION [None]
  - DYSPNOEA [None]
  - SOMNOLENCE [None]
  - TACHYPNOEA [None]
